FAERS Safety Report 20391049 (Version 3)
Quarter: 2022Q2

REPORT INFORMATION
  Report Type: Spontaneous
  Country: US (occurrence: US)
  Receive Date: 20220128
  Receipt Date: 20220421
  Transmission Date: 20220721
  Serious: Yes (Other)
  Sender: FDA-Public Use
  Company Number: US-JNJFOC-20220135827

PATIENT
  Age: 5 Decade
  Sex: Female

DRUGS (7)
  1. ELMIRON [Suspect]
     Active Substance: PENTOSAN POLYSULFATE SODIUM
     Indication: Cystitis interstitial
     Dosage: 6 PILLS A DAY
     Route: 048
     Dates: start: 1998, end: 2014
  2. ELMIRON [Suspect]
     Active Substance: PENTOSAN POLYSULFATE SODIUM
     Dosage: 4 PILLS A DAY
     Route: 048
     Dates: start: 2014, end: 2015
  3. NAPROXIN [NAPROXEN] [Concomitant]
     Indication: Arthritis
     Route: 065
     Dates: start: 200507, end: 201408
  4. ZYRTEC-D [Concomitant]
     Active Substance: CETIRIZINE HYDROCHLORIDE\PSEUDOEPHEDRINE HYDROCHLORIDE
     Indication: Hypersensitivity
     Route: 065
     Dates: start: 200308
  5. PREMARIN [Concomitant]
     Active Substance: ESTROGENS, CONJUGATED
     Indication: Hormone level abnormal
     Route: 065
     Dates: start: 198309, end: 200503
  6. ESTRADIOL [Concomitant]
     Active Substance: ESTRADIOL
     Indication: Hormone level abnormal
     Route: 065
     Dates: start: 200505, end: 201101
  7. ETODOLAC [Concomitant]
     Active Substance: ETODOLAC
     Indication: Arthritis
     Route: 065
     Dates: start: 200308, end: 200506

REACTIONS (7)
  - Macular dystrophy congenital [Not Recovered/Not Resolved]
  - Retinal dystrophy [Not Recovered/Not Resolved]
  - Maculopathy [Not Recovered/Not Resolved]
  - Pigment dispersion syndrome [Not Recovered/Not Resolved]
  - Pigmentary glaucoma [Unknown]
  - Off label use [Unknown]
  - Product use issue [Unknown]

NARRATIVE: CASE EVENT DATE: 19980101
